FAERS Safety Report 4314419-0 (Version None)
Quarter: 2004Q1

REPORT INFORMATION
  Report Type: 
  Country: None (occurrence: None)
  Receive Date: 20040308
  Receipt Date: 20031126
  Transmission Date: 20041129
  Serious: No
  Sender: FDA-Public Use
  Company Number: 04H-163-0246657-00

PATIENT
  Age: 52 Year
  Sex: Male
  Weight: 90.7194 kg

DRUGS (6)
  1. DEXMEDETOMIDINE INJECTION (DEXMEDETOMIDINE HYDROCHLORIDE INJECTION) [Suspect]
     Indication: ANAESTHESIA
     Dosage: 0.7 MG, INTRAVENOUS
     Route: 042
     Dates: start: 20031118, end: 20031125
  2. PROPOFOL [Suspect]
     Indication: ANAESTHESIA
     Dosage: INTRAVENOUS
     Route: 042
     Dates: start: 20031118, end: 20031125
  3. CELECOXIB [Concomitant]
  4. LANSOPRAZOLE [Concomitant]
  5. PARACETAMOL [Concomitant]
  6. IBUPROFEN [Concomitant]

REACTIONS (2)
  - HYPERTENSION [None]
  - MUSCLE TWITCHING [None]
